FAERS Safety Report 5910888-0 (Version None)
Quarter: 2008Q4

REPORT INFORMATION
  Report Type: 
  Country: None (occurrence: None)
  Receive Date: 20081007
  Receipt Date: 20080714
  Transmission Date: 20090506
  Serious: No
  Sender: FDA-Public Use
  Company Number: US-ASTRAZENECA-2008UW12784

PATIENT
  Age: 71 Year
  Sex: Female
  Weight: 54.4 kg

DRUGS (3)
  1. ARIMIDEX [Suspect]
     Indication: BREAST CANCER
     Route: 048
     Dates: start: 20080401
  2. SYNTHROID [Concomitant]
  3. XANAX [Concomitant]

REACTIONS (4)
  - BACK PAIN [None]
  - CHEST PAIN [None]
  - DYSPHONIA [None]
  - FATIGUE [None]
